FAERS Safety Report 10982783 (Version 1)
Quarter: 2015Q2

REPORT INFORMATION
  Report Type: Spontaneous
  Country: DE (occurrence: DE)
  Receive Date: 20150403
  Receipt Date: 20150403
  Transmission Date: 20150821
  Serious: Yes (Other)
  Sender: FDA-Public Use
  Company Number: DE-JNJFOC-20150314411

PATIENT
  Age: 82 Year
  Sex: Male

DRUGS (1)
  1. SEMPERA [Suspect]
     Active Substance: ITRACONAZOLE
     Indication: ONYCHOMYCOSIS
     Route: 048

REACTIONS (3)
  - Negative cardiac inotropic effect [Unknown]
  - Fluid retention [Unknown]
  - Dyspnoea [Unknown]
